FAERS Safety Report 13558869 (Version 2)
Quarter: 2020Q3

REPORT INFORMATION
  Report Type: Report from Study
  Country: US (occurrence: US)
  Receive Date: 20170518
  Receipt Date: 20170609
  Transmission Date: 20201104
  Serious: Yes (Death, Hospitalization, Other)
  Sender: FDA-Public Use
  Company Number: US-ASTRAZENECA-2016SE45813

PATIENT
  Age: 25526 Day
  Sex: Female

DRUGS (29)
  1. TREMELIMUMAB. [Suspect]
     Active Substance: TREMELIMUMAB
     Indication: NON-SMALL CELL LUNG CANCER
     Dosage: 75.0MG ONCE/SINGLE ADMINISTRATION
     Route: 042
     Dates: start: 20160328, end: 20160328
  2. OXYCODONE [Concomitant]
     Active Substance: OXYCODONE
     Indication: PAIN
     Route: 048
     Dates: start: 20160325, end: 20160426
  3. ONDANSETRON [Concomitant]
     Active Substance: ONDANSETRON
     Indication: NAUSEA
     Dosage: 4.0MG AS REQUIRED
     Route: 042
     Dates: start: 20160407, end: 20160413
  4. MEDI4736 [Suspect]
     Active Substance: DURVALUMAB
     Indication: NON-SMALL CELL LUNG CANCER
     Dosage: 1500.0MG ONCE/SINGLE ADMINISTRATION
     Route: 042
     Dates: start: 20160229, end: 20160229
  5. OXYCODONE [Concomitant]
     Active Substance: OXYCODONE
     Indication: PAIN
     Dosage: 30.0MG AS REQUIRED
     Route: 048
     Dates: start: 20160330, end: 20160426
  6. HYDROMORPHONE [Concomitant]
     Active Substance: HYDROMORPHONE
     Indication: ABDOMINAL PAIN
     Dosage: 2 MG Q2H PRN
     Route: 042
     Dates: start: 20160410, end: 20160410
  7. REGLAN [Concomitant]
     Active Substance: METOCLOPRAMIDE HYDROCHLORIDE
     Indication: NAUSEA
     Dosage: 10.0MG AS REQUIRED
     Route: 048
     Dates: start: 20160325, end: 20160426
  8. PROCHLORPERAZINE. [Concomitant]
     Active Substance: PROCHLORPERAZINE
     Indication: NAUSEA
     Dosage: 10.0MG AS REQUIRED
     Route: 042
     Dates: start: 20160411, end: 20160412
  9. LOPERAMIDE [Concomitant]
     Active Substance: LOPERAMIDE
     Indication: DIARRHOEA
     Dosage: 2.0MG AS REQUIRED
     Route: 048
     Dates: start: 20160412, end: 20160412
  10. TREMELIMUMAB. [Suspect]
     Active Substance: TREMELIMUMAB
     Indication: NON-SMALL CELL LUNG CANCER
     Dosage: 75.0MG ONCE/SINGLE ADMINISTRATION
     Route: 042
     Dates: start: 20160229, end: 20160229
  11. IBUPROFEN. [Concomitant]
     Active Substance: IBUPROFEN
     Indication: PAIN
     Route: 048
     Dates: start: 20160311, end: 20160426
  12. PROTONIX [Concomitant]
     Active Substance: PANTOPRAZOLE SODIUM
     Indication: PROPHYLAXIS
     Route: 048
     Dates: start: 20160311, end: 20160426
  13. OXYCODONE [Concomitant]
     Active Substance: OXYCODONE
     Indication: PAIN
     Dosage: 20.0MG AS REQUIRED
     Route: 048
     Dates: start: 20160409, end: 20160413
  14. MEDI4736 [Suspect]
     Active Substance: DURVALUMAB
     Indication: NON-SMALL CELL LUNG CANCER
     Dosage: 1500.0MG ONCE/SINGLE ADMINISTRATION
     Route: 042
     Dates: start: 20160328, end: 20160328
  15. DIPHENHYDRAMINE. [Concomitant]
     Active Substance: DIPHENHYDRAMINE
     Indication: SEASONAL ALLERGY
     Dosage: 25 MG QID PRN
     Route: 048
     Dates: start: 1996, end: 20160426
  16. OXYCODONE [Concomitant]
     Active Substance: OXYCODONE
     Indication: PAIN
     Route: 048
     Dates: start: 20160312, end: 20160426
  17. ONDANSETRON [Concomitant]
     Active Substance: ONDANSETRON
     Indication: NAUSEA
     Dosage: 8.0MG AS REQUIRED
     Route: 048
     Dates: start: 20160311, end: 20160426
  18. LIDOCAINE. [Concomitant]
     Active Substance: LIDOCAINE
     Indication: PAIN
     Dosage: 2 PATCHES Q24H PRN
     Route: 062
     Dates: start: 20160408, end: 20160426
  19. ACETAMINOPHEN. [Concomitant]
     Active Substance: ACETAMINOPHEN
     Indication: PAIN
     Dosage: 650 MG Q6H PRN
     Route: 048
     Dates: start: 20160408, end: 20160410
  20. 0.9% NACL + POTASSIUM CHLORIDE 20 MEQ/L [Concomitant]
     Indication: BLOOD CREATININE INCREASED
     Dosage: 4700.0ML CONTINUOUSLY
     Route: 042
     Dates: start: 20160407, end: 20160411
  21. LISINOPRIL. [Concomitant]
     Active Substance: LISINOPRIL
     Indication: HYPERTENSION
     Route: 048
     Dates: start: 2010, end: 20160426
  22. AMLODIPINE [Concomitant]
     Active Substance: AMLODIPINE BESYLATE
     Indication: HYPERTENSION
     Route: 048
     Dates: start: 2010, end: 20160426
  23. METHYLPREDNISOLONE. [Concomitant]
     Active Substance: METHYLPREDNISOLONE
     Indication: COLITIS
     Route: 042
     Dates: start: 20160408, end: 20160413
  24. SUCRALFATE. [Concomitant]
     Active Substance: SUCRALFATE
     Indication: PAIN
     Route: 048
     Dates: start: 20160409, end: 20160413
  25. BUPROPION HYDROCHLORIDE. [Concomitant]
     Active Substance: BUPROPION HYDROCHLORIDE
     Indication: DEPRESSION
     Route: 048
     Dates: start: 2005, end: 20160426
  26. VITAMIN D3 200 IU [Concomitant]
     Indication: SUPPLEMENTATION THERAPY
     Route: 048
     Dates: start: 2001, end: 20160426
  27. MORPHINE [Concomitant]
     Active Substance: MORPHINE
     Indication: ABDOMINAL PAIN
     Dosage: 8.0MG AS REQUIRED
     Route: 042
     Dates: start: 20160408, end: 20160409
  28. RANITIDINE. [Concomitant]
     Active Substance: RANITIDINE
     Indication: GASTROOESOPHAGEAL REFLUX DISEASE
     Dosage: 150 MG BID PRN
     Route: 048
     Dates: start: 2006, end: 20160426
  29. OXYCODONE [Concomitant]
     Active Substance: OXYCODONE
     Indication: PAIN
     Dosage: 20 MG Q2H PRN
     Route: 048
     Dates: start: 20160311, end: 20160426

REACTIONS (1)
  - Small intestinal obstruction [Fatal]

NARRATIVE: CASE EVENT DATE: 20160423
